FAERS Safety Report 9453155 (Version 1)
Quarter: 2013Q3

REPORT INFORMATION
  Report Type: Spontaneous
  Country: US (occurrence: None)
  Receive Date: 20130805
  Receipt Date: 20130805
  Transmission Date: 20140515
  Serious: Yes (Disabling, Other)
  Sender: FDA-Public Use
  Company Number: 1307-884

PATIENT
  Age: 89 Year
  Sex: Female
  Weight: 48.08 kg

DRUGS (1)
  1. EYLEA (AFLIBERCEPT) (INJECTION) (AFLIBERCEPT) [Suspect]
     Indication: MACULAR DEGENERATION
     Dosage: 2 MG, INTRAVITREAL
     Dates: start: 20130703

REACTIONS (2)
  - Non-infectious endophthalmitis [None]
  - Visual acuity reduced [None]
